FAERS Safety Report 7476191-5 (Version None)
Quarter: 2011Q2

REPORT INFORMATION
  Report Type: 
  Country: None (occurrence: None)
  Receive Date: 20110512
  Receipt Date: 20110502
  Transmission Date: 20111010
  Serious: Yes (Other)
  Sender: FDA-Public Use
  Company Number: FR-WATSON-2011-06499

PATIENT
  Age: 32 Year
  Sex: Male

DRUGS (2)
  1. PROGUANIL [Suspect]
     Indication: MALARIA PROPHYLAXIS
     Dosage: UNK
  2. CHLOROQUINE (WATSON LABORATORIES) [Suspect]
     Indication: MALARIA PROPHYLAXIS
     Dosage: UNK

REACTIONS (1)
  - DUODENAL ULCER [None]
